FAERS Safety Report 7534761-X (Version None)
Quarter: 2011Q2

REPORT INFORMATION
  Report Type: 
  Country: None (occurrence: None)
  Receive Date: 20110609
  Receipt Date: 20080718
  Transmission Date: 20111010
  Serious: Yes (Life-Threatening, Hospitalization, Disabling)
  Sender: FDA-Public Use
  Company Number: PHHY2008GB12318

PATIENT
  Sex: Female

DRUGS (8)
  1. DEPAKOTE [Concomitant]
     Indication: BIPOLAR DISORDER
     Dosage: 1500 MG DAILY
     Route: 048
     Dates: start: 20080101, end: 20080501
  2. VENLAFAXINE [Concomitant]
     Indication: BIPOLAR DISORDER
     Dosage: 225 MG DAILY
     Route: 048
  3. CLOZAPINE [Suspect]
     Dosage: 600 MG, UNK
     Route: 048
     Dates: start: 20070401, end: 20080501
  4. LITHIUM CARBONATE [Concomitant]
     Dosage: 1200 MG, UNK
  5. DIAZEPAM [Concomitant]
     Indication: ANXIETY
  6. OMEPRAZOLE [Concomitant]
     Indication: GASTRITIS
     Dosage: 20 MG DAILY
     Route: 048
  7. DIAZEPAM [Concomitant]
     Indication: AGITATION
     Dosage: 20 MG DAILY
     Route: 048
     Dates: start: 20061101, end: 20080501
  8. DIAZEPAM [Concomitant]
     Indication: BIPOLAR DISORDER

REACTIONS (4)
  - THROMBOTIC STROKE [None]
  - SPEECH DISORDER [None]
  - CEREBROVASCULAR ACCIDENT [None]
  - MUSCULAR WEAKNESS [None]
